FAERS Safety Report 15566655 (Version 1)
Quarter: 2018Q4

REPORT INFORMATION
  Report Type: Report from Study
  Country: DE (occurrence: DE)
  Receive Date: 20181030
  Receipt Date: 20181030
  Transmission Date: 20190205
  Serious: Yes (Hospitalization)
  Sender: FDA-Public Use
  Company Number: DE-TEVA-2018-DE-970104

PATIENT
  Age: 53 Year
  Sex: Male

DRUGS (5)
  1. ANTIHEMOPHILIC FACTOR [Concomitant]
     Active Substance: ANTIHEMOPHILIC FACTOR, HUMAN RECOMBINANT
     Indication: FACTOR VIII DEFICIENCY
     Dosage: DRUG: BAXTERVREKOMBINAT.
     Route: 042
     Dates: start: 1950
  2. PEGASYS [Suspect]
     Active Substance: PEGINTERFERON ALFA-2A
     Indication: CHRONIC HEPATITIS
     Route: 058
     Dates: start: 20030514
  3. RIBAVIRIN. [Suspect]
     Active Substance: RIBAVIRIN
     Indication: CHRONIC HEPATITIS
     Dosage: 1 MILLIGRAM DAILY;
     Route: 048
     Dates: start: 20030514
  4. PEG-INTERFERON ALFA 2A (RO 25-8310) [Suspect]
     Active Substance: PEGINTERFERON ALFA-2A
     Indication: HEPATITIS C
     Dosage: TAKEN WEEKLY
     Route: 058
     Dates: start: 20030514
  5. COPEGUS [Suspect]
     Active Substance: RIBAVIRIN
     Indication: HEPATITIS C
     Dosage: 1 MILLIGRAM DAILY;
     Route: 048
     Dates: start: 20030514

REACTIONS (1)
  - Fistula [Recovered/Resolved]

NARRATIVE: CASE EVENT DATE: 20031029
